FAERS Safety Report 4415933-X (Version None)
Quarter: 2004Q3

REPORT INFORMATION
  Report Type: 
  Country: None (occurrence: None)
  Receive Date: 20040805
  Receipt Date: 20040618
  Transmission Date: 20050211
  Serious: No
  Sender: FDA-Public Use
  Company Number: US-GLAXOSMITHKLINE-A0515208A

PATIENT
  Age: 63 Year
  Sex: Male

DRUGS (4)
  1. AVANDAMET [Suspect]
     Indication: ILL-DEFINED DISORDER
     Dosage: 1TAB TWICE PER DAY
     Route: 048
  2. ZOCOR [Concomitant]
  3. ACIPHEX [Concomitant]
  4. VIOXX [Concomitant]

REACTIONS (3)
  - ASTHENIA [None]
  - BLOOD TRIGLYCERIDES DECREASED [None]
  - MUSCLE CRAMP [None]
